FAERS Safety Report 6680016-5 (Version None)
Quarter: 2010Q2

REPORT INFORMATION
  Report Type: 
  Country: None (occurrence: None)
  Receive Date: 20100409
  Receipt Date: 20100329
  Transmission Date: 20101027
  Serious: Yes (Hospitalization)
  Sender: FDA-Public Use
  Company Number: 009526

PATIENT
  Sex: Female
  Weight: 76 kg

DRUGS (17)
  1. ACETAMINOPHEN AND HYDROCODONE BITARTRATE [Suspect]
     Dosage: 10/500 (10 MG), 1-2 TABS EVERY 4-6 HOURS AS NEEDED ORAL)
     Route: 048
     Dates: start: 20080118
  2. TAXOL [Suspect]
     Indication: BREAST CANCER
     Dosage: 90MGM2 ONCE EVERY 3 WEEKS IV, CUMULATIVE DOSMG, IV
     Route: 042
     Dates: start: 20080115, end: 20080131
  3. BEVACIZUMAB [Suspect]
     Dosage: 10 MG/KG, EVERY 2 WEEKS, INTERVAL: 2 WEEKS; CUMULATIVE DOSE: 1480 MG INTRAVENOUS
     Route: 042
  4. HYDROMORPHONE HCL [Suspect]
     Indication: BACK PAIN
     Dosage: 4 MG EVERY 6 HOURS AS NEEDED ORAL
     Route: 048
     Dates: start: 20070101
  5. HYDROMORPHONE HCL [Suspect]
     Indication: PAIN IN EXTREMITY
     Dosage: 4 MG EVERY 6 HOURS AS NEEDED ORAL
     Route: 048
     Dates: start: 20070101
  6. PANTOPRAZOLE SODIUM [Concomitant]
  7. PREDNISONE TAB [Concomitant]
  8. SULFASALAZINE [Concomitant]
  9. METHOTREXATE [Concomitant]
  10. PREGABALIN [Concomitant]
  11. CEVIMELINE HYDROCHLORIDE [Concomitant]
  12. DOCUSATE SODIUM [Concomitant]
  13. ONDANSETRON HYDROCHLORIDE [Concomitant]
  14. PROCHLORPERAZINE [Concomitant]
  15. SULFADIAZINE SILVER [Concomitant]
  16. DOXYCYCLINE [Concomitant]
  17. FILGRASTIM [Concomitant]

REACTIONS (5)
  - ABDOMINAL PAIN [None]
  - ASTHENIA [None]
  - CONSTIPATION [None]
  - GASTROINTESTINAL DISORDER [None]
  - HEPATIC LESION [None]
